FAERS Safety Report 9094717 (Version 2)
Quarter: 2013Q2

REPORT INFORMATION
  Report Type: Spontaneous
  Country: US (occurrence: US)
  Receive Date: 20130220
  Receipt Date: 20130409
  Transmission Date: 20140414
  Serious: No
  Sender: FDA-Public Use
  Company Number: US-BIOGENIDEC-2013BI013786

PATIENT
  Age: 47 Year
  Sex: Female

DRUGS (3)
  1. TYSABRI [Suspect]
     Indication: MULTIPLE SCLEROSIS
     Route: 042
     Dates: start: 20080416, end: 20090513
  2. TYSABRI [Suspect]
     Indication: MULTIPLE SCLEROSIS
     Route: 042
     Dates: start: 20090930, end: 20100202
  3. TYSABRI [Suspect]
     Indication: MULTIPLE SCLEROSIS
     Route: 042
     Dates: start: 20120511

REACTIONS (7)
  - General symptom [Not Recovered/Not Resolved]
  - Vertigo [Recovered/Resolved]
  - Gait disturbance [Recovered/Resolved with Sequelae]
  - Balance disorder [Recovered/Resolved]
  - Multiple sclerosis relapse [Recovered/Resolved]
  - Pruritus [Recovered/Resolved]
  - Nausea [Unknown]
